FAERS Safety Report 13940791 (Version 2)
Quarter: 2017Q4

REPORT INFORMATION
  Report Type: Spontaneous
  Country: FI (occurrence: FI)
  Receive Date: 20170906
  Receipt Date: 20171010
  Transmission Date: 20180320
  Serious: Yes (Other)
  Sender: FDA-Public Use
  Company Number: FI-PFIZER INC-2017377082

PATIENT
  Age: 80 Year
  Sex: Female

DRUGS (5)
  1. LYRICA [Suspect]
     Active Substance: PREGABALIN
     Indication: MUSCULOSKELETAL PAIN
     Dosage: 150 MG, 2X/DAY
     Dates: start: 20170910
  2. LYRICA [Suspect]
     Active Substance: PREGABALIN
     Indication: PAIN IN EXTREMITY
     Dosage: 150 MG, 1X/DAY
     Route: 048
     Dates: start: 20170626, end: 20170909
  3. GABRION [Suspect]
     Active Substance: GABAPENTIN
     Indication: MUSCULOSKELETAL PAIN
  4. GABRION [Suspect]
     Active Substance: GABAPENTIN
     Indication: PAIN IN EXTREMITY
     Dosage: 300 MG, 1X/DAY
     Route: 048
     Dates: start: 20161226, end: 20170909
  5. PANADOL FORTE [Concomitant]
     Active Substance: ACETAMINOPHEN\CAFFEINE
     Dosage: UNK

REACTIONS (8)
  - Hypoaesthesia [Not Recovered/Not Resolved]
  - Fall [Unknown]
  - Nasal injury [Unknown]
  - Pain in extremity [Unknown]
  - Face injury [Unknown]
  - Dizziness [Unknown]
  - Muscle spasms [Unknown]
  - Haemorrhage [Unknown]

NARRATIVE: CASE EVENT DATE: 201706
